FAERS Safety Report 8225502-1 (Version None)
Quarter: 2012Q1

REPORT INFORMATION
  Report Type: 
  Country: None (occurrence: None)
  Receive Date: 20120319
  Receipt Date: 20120116
  Transmission Date: 20120608
  Serious: Yes (Death)
  Sender: FDA-Public Use
  Company Number: AE12-012-76

PATIENT
  Age: 48 Year
  Sex: Female

DRUGS (5)
  1. CARISOPRODOL [Suspect]
     Dosage: ORALLY
     Route: 048
  2. ZOLPIDEM [Suspect]
     Dosage: ORALLY
     Route: 048
  3. ACETAMINOPHEN AND HYDROCODONE BITARTRATE [Suspect]
     Dosage: ORALLY
     Route: 048
  4. ONDANSETRON [Suspect]
     Dosage: ORALLY
     Route: 048
  5. GABAPENTIN [Suspect]
     Dosage: ORALLY
     Route: 048

REACTIONS (1)
  - DEATH [None]
